FAERS Safety Report 4896473-0 (Version None)
Quarter: 2006Q1

REPORT INFORMATION
  Report Type: 
  Country: None (occurrence: None)
  Receive Date: 20060131
  Receipt Date: 20060123
  Transmission Date: 20060701
  Serious: Yes (Other)
  Sender: FDA-Public Use
  Company Number: CH-NOVOPROD-250258

PATIENT
  Age: 10 Year
  Sex: Female
  Weight: 30 kg

DRUGS (5)
  1. NORDITROPIN SIMPLEXX [Suspect]
     Indication: GROWTH HORMONE DEFICIENCY
     Dosage: .6 MG, UNK
     Route: 058
     Dates: start: 20050630, end: 20051020
  2. MINIRIN ^AVENTIS PHARMA^ [Concomitant]
     Dosage: .5 UG, UNK
     Route: 045
  3. THYROXIN [Concomitant]
     Dosage: .1 MG, UNK
     Route: 048
  4. HYDROCORTISON                           /CZE/ [Concomitant]
     Dosage: 10 MG, UNK
     Route: 048
  5. CARBAMAZEPINE [Concomitant]

REACTIONS (1)
  - LYMPHADENOPATHY [None]
